FAERS Safety Report 22253656 (Version 2)
Quarter: 2023Q2

REPORT INFORMATION
  Report Type: Report from Study
  Country: AU (occurrence: AU)
  Receive Date: 20230426
  Receipt Date: 20230428
  Transmission Date: 20230721
  Serious: Yes (Death, Hospitalization)
  Sender: FDA-Public Use
  Company Number: AU-002147023-NVSC2021AU087686

PATIENT
  Age: 71 Year
  Sex: Male

DRUGS (11)
  1. RUXOLITINIB [Interacting]
     Active Substance: RUXOLITINIB
     Indication: Haemophagocytic lymphohistiocytosis
     Dosage: 15 MG, BID (STRENGTH 5, 10,15, 20 MG, TABLET)
     Route: 048
  2. RUXOLITINIB [Interacting]
     Active Substance: RUXOLITINIB
     Indication: Pulmonary vasculitis
     Dosage: 25 MG, BID
     Route: 048
     Dates: start: 20210301
  3. RUXOLITINIB [Interacting]
     Active Substance: RUXOLITINIB
     Indication: Autoinflammatory disease
     Dosage: 25 MG DAILY
     Route: 048
  4. RUXOLITINIB [Interacting]
     Active Substance: RUXOLITINIB
     Dosage: 35 MG, QD (25MG MORNING AND 10MG EVENING DOSE)
     Route: 048
  5. RUXOLITINIB [Interacting]
     Active Substance: RUXOLITINIB
     Dosage: 25 MG, BID
     Route: 065
  6. VORICONAZOLE [Interacting]
     Active Substance: VORICONAZOLE
     Indication: Product used for unknown indication
     Dosage: UNK
     Route: 065
  7. PREDNISOLONE [Concomitant]
     Active Substance: PREDNISOLONE
     Indication: Product used for unknown indication
     Dosage: 50 MG
     Route: 065
     Dates: start: 2015
  8. APIXABAN [Concomitant]
     Active Substance: APIXABAN
     Indication: Product used for unknown indication
     Dosage: 5 MG, BID
     Route: 065
     Dates: start: 2010
  9. VALACYCLOVIR HYDROCHLORIDE [Concomitant]
     Active Substance: VALACYCLOVIR HYDROCHLORIDE
     Indication: Product used for unknown indication
     Dosage: 500 MG, QD
     Route: 065
     Dates: start: 2019
  10. NYSTATIN [Concomitant]
     Active Substance: NYSTATIN
     Indication: Product used for unknown indication
     Dosage: 100000 UNITS QID
     Route: 065
     Dates: start: 2020
  11. COTRIMOXAZOLE [Concomitant]
     Active Substance: SULFAMETHOXAZOLE\TRIMETHOPRIM
     Indication: Product used for unknown indication
     Dosage: 400/80 MG, QD
     Route: 065
     Dates: start: 2018

REACTIONS (5)
  - Death [Fatal]
  - Scedosporium infection [Recovering/Resolving]
  - Drug interaction [Unknown]
  - Therapeutic product effect incomplete [Unknown]
  - Product supply issue [Unknown]

NARRATIVE: CASE EVENT DATE: 20220501
